FAERS Safety Report 21921156 (Version 1)
Quarter: 2023Q1

REPORT INFORMATION
  Report Type: Report from Study
  Country: BR (occurrence: BR)
  Receive Date: 20230127
  Receipt Date: 20230127
  Transmission Date: 20230417
  Serious: Yes (Other)
  Sender: FDA-Public Use
  Company Number: BR-JNJFOC-20230145915

PATIENT
  Age: 60 Year
  Sex: Male
  Weight: 77 kg

DRUGS (1)
  1. REMICADE [Suspect]
     Active Substance: INFLIXIMAB
     Indication: Ankylosing spondylitis
     Route: 041
     Dates: start: 2021, end: 202206

REACTIONS (1)
  - Lymphadenectomy [Unknown]

NARRATIVE: CASE EVENT DATE: 20220901
